FAERS Safety Report 14447153 (Version 1)
Quarter: 2018Q1

REPORT INFORMATION
  Report Type: Spontaneous
  Country: FR (occurrence: FR)
  Receive Date: 20180126
  Receipt Date: 20180126
  Transmission Date: 20180509
  Serious: Yes (Hospitalization)
  Sender: FDA-Public Use
  Company Number: FR-GUERBET-FR-20180031

PATIENT
  Age: 85 Year
  Sex: Male
  Weight: 95 kg

DRUGS (2)
  1. DOTAREM [Suspect]
     Active Substance: GADOTERATE MEGLUMINE
     Indication: NUCLEAR MAGNETIC RESONANCE IMAGING
     Route: 042
     Dates: start: 20171206, end: 20171206
  2. FUCIDINE [Suspect]
     Active Substance: FUSIDIC ACID
     Indication: INTERTRIGO
     Route: 061
     Dates: start: 20171211, end: 20171218

REACTIONS (3)
  - Pruritus [Recovering/Resolving]
  - Eosinophilia [Recovered/Resolved]
  - Rash maculo-papular [Recovering/Resolving]

NARRATIVE: CASE EVENT DATE: 20171217
